FAERS Safety Report 24045602 (Version 1)
Quarter: 2024Q3

REPORT INFORMATION
  Report Type: Spontaneous
  Country: US (occurrence: US)
  Receive Date: 20240703
  Receipt Date: 20240703
  Transmission Date: 20241017
  Serious: No
  Sender: EMD SERONO INC
  Company Number: US-Merck Healthcare KGaA-2024033797

PATIENT
  Sex: Female

DRUGS (1)
  1. CETROTIDE [Suspect]
     Active Substance: CETRORELIX ACETATE
     Indication: Product used for unknown indication

REACTIONS (1)
  - Premature ovulation [Unknown]
